FAERS Safety Report 4726560-9 (Version None)
Quarter: 2005Q3

REPORT INFORMATION
  Report Type: 
  Country: None (occurrence: None)
  Receive Date: 20050726
  Receipt Date: 20050714
  Transmission Date: 20060218
  Serious: Yes (Hospitalization)
  Sender: FDA-Public Use
  Company Number: 2005084887

PATIENT
  Age: 20 Month
  Sex: Female
  Weight: 11 kg

DRUGS (10)
  1. UNASYN [Suspect]
     Indication: PNEUMONIA
     Dosage: 0.6 GRAM (0.6 GRAM, DAILY), INTRAVENOUS ; 1.2 GRAM (0.4 GRAM, TID) , INTRAVENOUS
     Route: 042
     Dates: start: 20050415, end: 20050415
  2. UNASYN [Suspect]
     Indication: PNEUMONIA
     Dosage: 0.6 GRAM (0.6 GRAM, DAILY), INTRAVENOUS ; 1.2 GRAM (0.4 GRAM, TID) , INTRAVENOUS
     Route: 042
     Dates: start: 20050416, end: 20050419
  3. MEDICON (DEXTROMETHORPHAN HYDROBROMIDE) [Concomitant]
  4. MUCODYNE (CARBOCISTEINE) [Concomitant]
  5. PERIACTIN [Concomitant]
  6. SOLDEM 1 (GLUCOSE, SODIUM CHLORIDE, SODIUM LACTATE) [Concomitant]
  7. SOLDEM 3A (CARBOHYDRATES NOS, POTASSIUM CHLORIDE, SODIUM CHLORIDE, SOD [Concomitant]
  8. HUSCODE (CHLORPHENAMINE MALEATE, DIHYDROCODEINE PHOSPHATE, METHYLEPHED [Concomitant]
  9. CELESTAMINE TAB [Concomitant]
  10. MUCOSOLVAN (AMBROXOL HYDROCHLORIDE) [Concomitant]

REACTIONS (1)
  - HEPATIC FUNCTION ABNORMAL [None]
